FAERS Safety Report 4650703-9 (Version None)
Quarter: 2005Q2

REPORT INFORMATION
  Report Type: 
  Country: None (occurrence: None)
  Receive Date: 20050503
  Receipt Date: 20040206
  Transmission Date: 20051028
  Serious: Yes (Hospitalization)
  Sender: FDA-Public Use
  Company Number: DK-NOVOPROD-235281

PATIENT
  Age: 25 Year
  Sex: Female
  Weight: 96 kg

DRUGS (7)
  1. ACTRAPID PENFILL HM(GE) 3.0 ML [Suspect]
     Indication: DIABETES MELLITUS INSULIN-DEPENDENT
     Dosage: 118 IU, QD
     Route: 058
     Dates: start: 20031002
  2. ACTRAPID PENFILL HM(GE) 3.0 ML [Suspect]
     Dosage: 110 IU, QD
     Route: 058
  3. INSULATARD PENFILL [Concomitant]
     Indication: DIABETES MELLITUS INSULIN-DEPENDENT
     Dosage: 42 IU, QD
     Route: 058
     Dates: start: 20031002
  4. INSULATARD PENFILL [Concomitant]
     Dosage: 50 IU, QD
     Route: 058
     Dates: start: 20031002
  5. VITAMINS [Concomitant]
     Dosage: 1 TAB, QD
     Route: 048
     Dates: start: 20031001
  6. IRON [Concomitant]
     Dosage: 1 TAB, QD
     Route: 048
     Dates: start: 20031216
  7. METYLDOPA [Concomitant]
     Dosage: 750 MG, QD
     Route: 048
     Dates: start: 20030129

REACTIONS (1)
  - DIABETES MELLITUS INADEQUATE CONTROL [None]
